FAERS Safety Report 9771891 (Version 1)
Quarter: 2013Q4

REPORT INFORMATION
  Report Type: Spontaneous
  Country: US (occurrence: US)
  Receive Date: 20131219
  Receipt Date: 20131219
  Transmission Date: 20140711
  Serious: No
  Sender: FDA-Public Use
  Company Number: US-009507513-1312USA004422

PATIENT
  Sex: Female

DRUGS (5)
  1. SAPHRIS [Suspect]
     Indication: BIPOLAR DISORDER
     Dosage: 5 MG, BID
     Dates: start: 2011
  2. SAPHRIS [Suspect]
     Dosage: 10 MG, BID
     Dates: end: 201309
  3. SYNTHROID [Concomitant]
  4. PRISTIQ [Concomitant]
  5. PRAVASTATIN SODIUM [Concomitant]

REACTIONS (1)
  - Orthostatic hypotension [Not Recovered/Not Resolved]
